FAERS Safety Report 5360890-5 (Version None)
Quarter: 2007Q2

REPORT INFORMATION
  Report Type: 
  Country: None (occurrence: None)
  Receive Date: 20070618
  Receipt Date: 20070606
  Transmission Date: 20071010
  Serious: Yes (Other)
  Sender: FDA-Public Use
  Company Number: US-PFIZER INC-2007047516

PATIENT
  Sex: Male
  Weight: 165 kg

DRUGS (14)
  1. CHANTIX [Suspect]
     Route: 048
  2. ISOSORBIDE DINITRATE [Concomitant]
  3. ADVAIR DISKUS 100/50 [Concomitant]
  4. OMEPRAZOLE [Concomitant]
  5. SPIRIVA [Concomitant]
  6. METOPROLOL SUCCINATE [Concomitant]
  7. DOXAZOSIN MESYLATE [Concomitant]
  8. HYZAAR [Concomitant]
  9. COZAAR [Concomitant]
  10. NORVASC [Concomitant]
  11. AMLODIPINE [Concomitant]
  12. SIMVASTATIN [Concomitant]
  13. PLAVIX [Concomitant]
  14. ACETYLSALICYLIC ACID SRT [Concomitant]

REACTIONS (4)
  - CARDIAC FAILURE CONGESTIVE [None]
  - DYSPEPSIA [None]
  - DYSPNOEA [None]
  - MUSCLE SPASMS [None]
